FAERS Safety Report 6624718-5 (Version None)
Quarter: 2010Q1

REPORT INFORMATION
  Report Type: 
  Country: None (occurrence: None)
  Receive Date: 20100310
  Receipt Date: 20100301
  Transmission Date: 20100710
  Serious: Yes (Life-Threatening)
  Sender: FDA-Public Use
  Company Number: NL-ROCHE-684776

PATIENT
  Sex: Female

DRUGS (6)
  1. BEVACIZUMAB [Suspect]
     Indication: COLORECTAL CANCER
     Dosage: 6 CYCLES COMPLETED.
     Route: 042
     Dates: start: 20090622
  2. BEVACIZUMAB [Suspect]
     Route: 042
     Dates: start: 20100115
  3. CAPECITABINE [Suspect]
     Indication: COLORECTAL CANCER
     Dosage: 6 CYCLES COMPLETED.
     Route: 042
     Dates: start: 20090622
  4. CAPECITABINE [Suspect]
     Route: 042
     Dates: start: 20100115
  5. OXALIPLATIN [Suspect]
     Indication: COLORECTAL CANCER
     Dosage: 6 CYCLES COMPLETED.
     Route: 042
     Dates: start: 20090622
  6. OXALIPLATIN [Suspect]
     Route: 042
     Dates: start: 20100115

REACTIONS (1)
  - INTESTINAL PERFORATION [None]
